FAERS Safety Report 6492877-3 (Version None)
Quarter: 2009Q4

REPORT INFORMATION
  Report Type: 
  Country: None (occurrence: None)
  Receive Date: 20091214
  Receipt Date: 20091203
  Transmission Date: 20100525
  Serious: Yes (Hospitalization)
  Sender: FDA-Public Use
  Company Number: US-ELI_LILLY_AND_COMPANY-US200912001214

PATIENT
  Age: 44 Year
  Sex: Female
  Weight: 87.2 kg

DRUGS (3)
  1. GEMCITABINE HCL [Suspect]
     Indication: BREAST CANCER
     Route: 042
     Dates: start: 20090813
  2. BEVACIZUMAB [Suspect]
     Indication: BREAST CANCER
     Dosage: 1310 MG, OTHER
     Route: 042
     Dates: start: 20090813
  3. PACLITAXEL, ALBUMIN-BOUND [Suspect]
     Indication: BREAST CANCER
     Dosage: UNK, OTHER
     Route: 042
     Dates: start: 20090813

REACTIONS (2)
  - FISTULA [None]
  - STREPTOCOCCAL INFECTION [None]
